FAERS Safety Report 23187368 (Version 2)
Quarter: 2023Q4

REPORT INFORMATION
  Report Type: Report from Study
  Country: US (occurrence: US)
  Receive Date: 20231115
  Receipt Date: 20231212
  Transmission Date: 20240109
  Serious: Yes (Other)
  Sender: FDA-Public Use
  Company Number: US-ZENPEP LLC-2023AIMT01205

PATIENT

DRUGS (2)
  1. ZENPEP [Suspect]
     Active Substance: PANCRELIPASE AMYLASE\PANCRELIPASE LIPASE\PANCRELIPASE PROTEASE
     Indication: Irritable bowel syndrome
     Dosage: 40 000 USP UNITS
     Route: 048
     Dates: start: 20230403
  2. ZENPEP [Suspect]
     Active Substance: PANCRELIPASE AMYLASE\PANCRELIPASE LIPASE\PANCRELIPASE PROTEASE
     Dosage: 40 000 USP UNITS, ONCE, LAST DOSE PRIOR EVENT
     Route: 048

REACTIONS (6)
  - Cataract [Unknown]
  - Diarrhoea [Unknown]
  - Product use issue [Unknown]
  - Arthritis [Unknown]
  - Blood pressure abnormal [Unknown]
  - Gastrooesophageal reflux disease [Unknown]
